FAERS Safety Report 7483486-8 (Version None)
Quarter: 2011Q2

REPORT INFORMATION
  Report Type: 
  Country: None (occurrence: None)
  Receive Date: 20110517
  Receipt Date: 20110505
  Transmission Date: 20111010
  Serious: No
  Sender: FDA-Public Use
  Company Number: US-JNJFOC-20110504327

PATIENT
  Sex: Female
  Weight: 99.79 kg

DRUGS (8)
  1. FENTANYL [Suspect]
     Route: 062
  2. FENTANYL [Suspect]
     Indication: PAIN
     Dosage: 2 PATCHES OF 100UG/HR
     Route: 062
  3. FENTANYL [Suspect]
     Route: 062
     Dates: start: 20110101
  4. FENTANYL [Suspect]
     Route: 062
  5. FENTANYL [Suspect]
     Route: 062
  6. FENTANYL [Suspect]
     Route: 062
     Dates: start: 20110101, end: 20110101
  7. FENTANYL [Suspect]
     Route: 062
  8. FENTANYL [Suspect]
     Route: 062
     Dates: start: 20100101

REACTIONS (5)
  - SOMNOLENCE [None]
  - DRUG TOLERANCE [None]
  - DRUG INEFFECTIVE [None]
  - INAPPROPRIATE SCHEDULE OF DRUG ADMINISTRATION [None]
  - PRODUCT QUALITY ISSUE [None]
